FAERS Safety Report 8909631 (Version 1)
Quarter: 2012Q4

REPORT INFORMATION
  Report Type: 
  Country: CN (occurrence: CN)
  Receive Date: 20121115
  Receipt Date: 20121115
  Transmission Date: 20130627
  Serious: Yes (Other)
  Sender: FDA-Public Use
  Company Number: CN-US-EMD SERONO, INC.-7173052

PATIENT
  Age: 33 Year
  Sex: Female

DRUGS (6)
  1. GONAL-F [Suspect]
     Indication: IN VITRO FERTILISATION
  2. GONAL-F [Suspect]
  3. PROGESTERONE [Suspect]
     Indication: IN VITRO FERTILISATION
  4. CHORIOGONADOTROPIN ALFA [Suspect]
     Indication: IN VITRO FERTILISATION
  5. LIVZON [Suspect]
     Indication: IN VITRO FERTILISATION
  6. MEDROXYPROGESTERONE ACETATE [Suspect]
     Indication: INFERTILITY

REACTIONS (3)
  - Endometrial adenocarcinoma [Unknown]
  - Endometrial hypoplasia [Unknown]
  - Endometrial adenocarcinoma [None]
